FAERS Safety Report 18968019 (Version 1)
Quarter: 2021Q1

REPORT INFORMATION
  Report Type: Spontaneous
  Country: US (occurrence: US)
  Receive Date: 20210304
  Receipt Date: 20210304
  Transmission Date: 20210420
  Serious: Yes (Hospitalization, Other)
  Sender: FDA-Public Use
  Company Number: US-UNICHEM PHARMACEUTICALS (USA) INC-UCM202102-000180

PATIENT

DRUGS (3)
  1. VENLAFAXINE [Suspect]
     Active Substance: VENLAFAXINE HYDROCHLORIDE
     Indication: FOETAL EXPOSURE DURING PREGNANCY
     Dosage: UNKNOWN
  2. QUETIAPINE. [Suspect]
     Active Substance: QUETIAPINE
     Indication: FOETAL EXPOSURE DURING PREGNANCY
     Dosage: UNKNOWN
  3. BUPROPION. [Suspect]
     Active Substance: BUPROPION
     Indication: FOETAL EXPOSURE DURING PREGNANCY
     Dosage: UNKNOWN

REACTIONS (3)
  - Encephalopathy [Unknown]
  - Drug interaction [Unknown]
  - Dyskinesia [Unknown]
